FAERS Safety Report 16311119 (Version 4)
Quarter: 2019Q3

REPORT INFORMATION
  Report Type: Spontaneous
  Country: GB (occurrence: GB)
  Receive Date: 20190514
  Receipt Date: 20190906
  Transmission Date: 20191004
  Serious: Yes (Hospitalization, Other)
  Sender: FDA-Public Use
  Company Number: GB-MYLANLABS-2019M1044813

PATIENT
  Sex: Female
  Weight: 68.6 kg

DRUGS (2)
  1. CLOZARIL [Suspect]
     Active Substance: CLOZAPINE
     Indication: SCHIZOPHRENIA
     Dosage: 12.5 MILLIGRAM, BID
     Route: 048
     Dates: start: 20190409, end: 20190428
  2. CLOZARIL [Suspect]
     Active Substance: CLOZAPINE
     Dosage: 100 MILLIGRAM, BID
     Route: 048
     Dates: start: 20190516

REACTIONS (5)
  - Leukopenia [Recovered/Resolved]
  - Lymphadenopathy [Unknown]
  - Sepsis [Unknown]
  - Myeloproliferative neoplasm [Unknown]
  - Haemoglobin decreased [Recovering/Resolving]

NARRATIVE: CASE EVENT DATE: 2019
